FAERS Safety Report 7124601-5 (Version None)
Quarter: 2010Q4

REPORT INFORMATION
  Report Type: 
  Country: None (occurrence: None)
  Receive Date: 20101122
  Receipt Date: 20101122
  Transmission Date: 20110411
  Serious: Yes (Hospitalization)
  Sender: FDA-Public Use
  Company Number: None

PATIENT
  Age: 42 Year
  Sex: Female
  Weight: 90.7194 kg

DRUGS (1)
  1. ULTRACET [Suspect]
     Indication: CYSTITIS
     Dosage: PO 2 OR 3 DAYS
     Route: 048

REACTIONS (2)
  - CHROMATURIA [None]
  - VOMITING [None]
